FAERS Safety Report 6623847-X (Version None)
Quarter: 2010Q1

REPORT INFORMATION
  Report Type: 
  Country: None (occurrence: None)
  Receive Date: 20100304
  Receipt Date: 20100217
  Transmission Date: 20100710
  Serious: Yes (Death)
  Sender: FDA-Public Use
  Company Number: 008937

PATIENT
  Age: 19 Year
  Sex: Female

DRUGS (3)
  1. BUSULFEX [Suspect]
     Indication: STEM CELL TRANSPLANT
     Dosage: 0.8 MG/KG
     Dates: start: 20090201
  2. MELPHALAN HYDROCHLORIDE [Suspect]
     Dosage: 70 MG/M2
  3. GEMTUZUMAB (GEMTUZUMAB) [Suspect]

REACTIONS (4)
  - CYTOMEGALOVIRUS TEST [None]
  - LUNG DISORDER [None]
  - PNEUMONIA CYTOMEGALOVIRAL [None]
  - VENOOCCLUSIVE LIVER DISEASE [None]
